FAERS Safety Report 5874852-2 (Version None)
Quarter: 2008Q3

REPORT INFORMATION
  Report Type: 
  Country: None (occurrence: None)
  Receive Date: 20080904
  Receipt Date: 20080825
  Transmission Date: 20090109
  Serious: No
  Sender: FDA-Public Use
  Company Number: CIP08001433

PATIENT
  Age: 65 Year
  Sex: Female

DRUGS (3)
  1. RISEDRONATE SODIUM [Suspect]
     Indication: OSTEOPOROSIS
     Dosage: 17.5 MG ONCE WEEKLY, ONE DOSE ONLY, ORAL
     Route: 048
     Dates: start: 20071101, end: 20071101
  2. LOXONIN /00890702/ (LOXOPROFEN SODIUM) [Suspect]
     Dosage: ORAL
     Route: 048
     Dates: start: 20071220
  3. SULCAIN (EPAB) [Suspect]
     Dates: start: 20071220

REACTIONS (1)
  - UTERINE HAEMORRHAGE [None]
